FAERS Safety Report 19948159 (Version 2)
Quarter: 2021Q4

REPORT INFORMATION
  Report Type: Spontaneous
  Country: US (occurrence: US)
  Receive Date: 20211012
  Receipt Date: 20211015
  Transmission Date: 20220303
  Serious: Yes (Other)
  Sender: FDA-Public Use
  Company Number: US-GILEAD-2021-0552273

PATIENT
  Age: 53 Year
  Sex: Male
  Weight: 111.3 kg

DRUGS (1)
  1. TECARTUS [Suspect]
     Active Substance: BREXUCABTAGENE AUTOLEUCEL
     Indication: Mantle cell lymphoma
     Dosage: UNK
     Route: 065
     Dates: start: 20210826, end: 20210826

REACTIONS (2)
  - Cytokine release syndrome [Unknown]
  - Headache [Unknown]

NARRATIVE: CASE EVENT DATE: 20210830
